FAERS Safety Report 11752534 (Version 1)
Quarter: 2015Q4

REPORT INFORMATION
  Report Type: Report from Study
  Country: NZ (occurrence: NZ)
  Receive Date: 20151119
  Receipt Date: 20151119
  Transmission Date: 20160304
  Serious: Yes (Hospitalization, Other)
  Sender: FDA-Public Use
  Company Number: NZ-ROCHE-1662578

PATIENT
  Age: 47 Year
  Sex: Female

DRUGS (2)
  1. XELODA [Suspect]
     Active Substance: CAPECITABINE
     Dosage: REDUCED DOSE
     Route: 048
  2. XELODA [Suspect]
     Active Substance: CAPECITABINE
     Indication: APPENDIX CANCER
     Route: 048
     Dates: start: 20130120, end: 201308

REACTIONS (7)
  - Insomnia [Recovered/Resolved]
  - Off label use [Unknown]
  - Tenderness [Recovered/Resolved]
  - Pain in extremity [Recovered/Resolved]
  - Eye pain [Recovered/Resolved]
  - Skin disorder [Recovered/Resolved]
  - Seizure [Recovered/Resolved]

NARRATIVE: CASE EVENT DATE: 201302
